FAERS Safety Report 9123466 (Version 2)
Quarter: 2013Q1

REPORT INFORMATION
  Report Type: Spontaneous
  Country: US (occurrence: US)
  Receive Date: 20130227
  Receipt Date: 20130304
  Transmission Date: 20140127
  Serious: No
  Sender: FDA-Public Use
  Company Number: US-PFIZER INC-2013067806

PATIENT
  Age: 69 Year
  Sex: Male

DRUGS (2)
  1. INLYTA [Suspect]
     Indication: RENAL CANCER
     Dosage: 2 MG, 2X/DAY (1 MG, 2 TABLETS TWICE DAILY)
     Dates: start: 20121226
  2. INLYTA [Suspect]
     Indication: RENAL CANCER

REACTIONS (3)
  - Bone disorder [Unknown]
  - Disease progression [Unknown]
  - Renal cancer metastatic [Unknown]
